FAERS Safety Report 11633737 (Version 1)
Quarter: 2015Q4

REPORT INFORMATION
  Report Type: Spontaneous
  Country: US (occurrence: US)
  Receive Date: 20151015
  Receipt Date: 20151015
  Transmission Date: 20160304
  Serious: No
  Sender: FDA-Public Use
  Company Number: US-INDIVIOR-RB-73331-2014

PATIENT
  Age: 51 Year
  Sex: Female

DRUGS (1)
  1. SUBOXONE [Suspect]
     Active Substance: BUPRENORPHINE HYDROCHLORIDE\NALOXONE HYDROCHLORIDE
     Indication: PRODUCT USED FOR UNKNOWN INDICATION
     Dosage: UNK
     Route: 065

REACTIONS (6)
  - Condition aggravated [Recovered/Resolved]
  - Nerve injury [Recovered/Resolved]
  - Product preparation error [Unknown]
  - Trigger finger [Recovered/Resolved]
  - Carpal tunnel syndrome [Recovered/Resolved]
  - Vision blurred [Not Recovered/Not Resolved]
